FAERS Safety Report 26204543 (Version 1)
Quarter: 2025Q4

REPORT INFORMATION
  Report Type: Spontaneous
  Country: CA (occurrence: CA)
  Receive Date: 20251227
  Receipt Date: 20251227
  Transmission Date: 20260117
  Serious: Yes (Hospitalization)
  Sender: ACCORD
  Company Number: None

PATIENT
  Age: 76 Year
  Sex: Male
  Weight: 88 kg

DRUGS (10)
  1. AMLODIPINE [Suspect]
     Active Substance: AMLODIPINE BESYLATE
     Indication: Product used for unknown indication
     Dosage: 1 EVERY 1 DAYS
  2. ROSUVASTATIN [Suspect]
     Active Substance: ROSUVASTATIN
     Indication: Product used for unknown indication
     Dosage: 1 EVERY 1 DAYS
  3. METOPROLOL [Suspect]
     Active Substance: METOPROLOL
     Indication: Product used for unknown indication
     Dosage: 2 EVERY 1 DAYS
  4. BENZTROPINE [Suspect]
     Active Substance: BENZTROPINE
     Indication: Tremor
     Dosage: 2 EVERY 1 DAYS
     Route: 048
  5. FUROSEMIDE [Suspect]
     Active Substance: FUROSEMIDE
     Indication: Product used for unknown indication
     Dosage: 1 EVERY 1 DAYS
  6. BENZTROPINE [Concomitant]
     Active Substance: BENZTROPINE
  7. CARBIDOPA AND LEVODOPA [Concomitant]
     Active Substance: CARBIDOPA\LEVODOPA
     Dosage: STRENGTH: 200/50
  8. LEVOTHYROXINE [Concomitant]
     Active Substance: LEVOTHYROXINE
  9. POTASSIUM CHLORIDE [Concomitant]
     Active Substance: POTASSIUM CHLORIDE
     Dosage: SOLUTION INTRAVENOUS
  10. VEDOLIZUMAB [Concomitant]
     Active Substance: VEDOLIZUMAB
     Dosage: POWDER FOR SOLUTION INTRAVENOUS

REACTIONS (8)
  - Eye haematoma [Recovering/Resolving]
  - Balance disorder [Recovering/Resolving]
  - Head injury [Recovering/Resolving]
  - Confusional state [Recovering/Resolving]
  - Delirium [Recovering/Resolving]
  - Skin laceration [Recovering/Resolving]
  - Fall [Recovering/Resolving]
  - Orthostatic hypotension [Recovering/Resolving]
